FAERS Safety Report 9338702 (Version 1)
Quarter: 2013Q2

REPORT INFORMATION
  Report Type: Spontaneous
  Country: AT (occurrence: AT)
  Receive Date: 20130610
  Receipt Date: 20130610
  Transmission Date: 20140414
  Serious: Yes (Hospitalization)
  Sender: FDA-Public Use
  Company Number: AT-ROCHE-1234961

PATIENT
  Age: 83 Year
  Sex: Male

DRUGS (1)
  1. MABTHERA [Suspect]
     Indication: RHEUMATOID ARTHRITIS
     Dosage: 500 MG/14 DAYS
     Route: 065
     Dates: start: 201107

REACTIONS (2)
  - Aortic valve replacement [Recovered/Resolved]
  - Coronary artery bypass [Recovered/Resolved]
